FAERS Safety Report 14852480 (Version 2)
Quarter: 2018Q2

REPORT INFORMATION
  Report Type: Spontaneous
  Country: US (occurrence: US)
  Receive Date: 20180507
  Receipt Date: 20180516
  Transmission Date: 20180711
  Serious: No
  Sender: FDA-Public Use
  Company Number: US-PFIZER INC-2018185892

PATIENT
  Sex: Female

DRUGS (1)
  1. LYRICA [Suspect]
     Active Substance: PREGABALIN
     Dosage: UNK

REACTIONS (8)
  - Abdominal discomfort [Unknown]
  - Withdrawal syndrome [Unknown]
  - Nausea [Unknown]
  - Irritability [Unknown]
  - Malaise [Unknown]
  - Intentional product misuse [Unknown]
  - Headache [Unknown]
  - Mood swings [Unknown]
